FAERS Safety Report 11909714 (Version 1)
Quarter: 2016Q1

REPORT INFORMATION
  Report Type: Spontaneous
  Country: US (occurrence: None)
  Receive Date: 20160111
  Receipt Date: 20160111
  Transmission Date: 20160526
  Serious: No
  Sender: FDA-Public Use
  Company Number: None

PATIENT
  Age: 54 Year
  Sex: Female

DRUGS (1)
  1. LIDOCAINE 5% PATCH 5% MYLAN [Suspect]
     Active Substance: LIDOCAINE
     Dosage: 1 PATCH
     Route: 061
     Dates: start: 20151227, end: 20160102

REACTIONS (2)
  - Product substitution issue [None]
  - Product adhesion issue [None]

NARRATIVE: CASE EVENT DATE: 20151227
